FAERS Safety Report 8276567-2 (Version None)
Quarter: 2012Q2

REPORT INFORMATION
  Report Type: 
  Country: None (occurrence: None)
  Receive Date: 20120412
  Receipt Date: 20120404
  Transmission Date: 20120825
  Serious: Yes (Hospitalization, Other)
  Sender: FDA-Public Use
  Company Number: US-BAYER-201038146NA

PATIENT
  Age: 43 Year
  Sex: Female
  Weight: 87 kg

DRUGS (10)
  1. NASONEX [Concomitant]
     Dosage: 0.5 MG, UNK
     Dates: start: 20100301
  2. YAZ [Suspect]
     Indication: MENORRHAGIA
  3. CRESTOR [Concomitant]
     Dosage: 5 MG, UNK
     Dates: start: 20080101
  4. YAZ [Suspect]
     Indication: PREMENSTRUAL SYNDROME
     Route: 048
     Dates: start: 20091101, end: 20100413
  5. ALBUTEROL [Concomitant]
     Dosage: 0.9 MG, UNK
     Dates: start: 20100301
  6. WELLBUTRIN SR [Concomitant]
  7. SYNTHROID [Concomitant]
  8. PREDNISONE TAB [Concomitant]
  9. ADVAIR DISKUS 100/50 [Concomitant]
     Dosage: 100 MG, UNK
     Dates: start: 20100301
  10. ADVAIR DISKUS 100/50 [Concomitant]
     Dosage: 250/50

REACTIONS (5)
  - PULMONARY EMBOLISM [None]
  - BILIARY DYSKINESIA [None]
  - MENTAL DISORDER [None]
  - CEREBROVASCULAR ACCIDENT [None]
  - GALLBLADDER DISORDER [None]
